FAERS Safety Report 8531512-7 (Version None)
Quarter: 2012Q3

REPORT INFORMATION
  Report Type: 
  Country: None (occurrence: None)
  Receive Date: 20120723
  Receipt Date: 20120718
  Transmission Date: 20120928
  Serious: Yes (Disabling)
  Sender: FDA-Public Use
  Company Number: FI-PFIZER INC-2012172990

PATIENT
  Age: 69 Year
  Sex: Female

DRUGS (9)
  1. FLUTICASONE PROPIONATE/SALMETEROL [Concomitant]
     Indication: ASTHMA
     Dosage: 25/250 MCG, 2 DOSES 2X/DAY
  2. BISOPROLOL FUMARATE [Concomitant]
     Indication: BLOOD PRESSURE
     Dosage: 5 MG, 1X/DAY
     Route: 048
  3. OMEPRAZOLE [Concomitant]
     Dosage: 20 MG, 1X/DAY
  4. VAGIFEM [Concomitant]
     Dosage: 25 UG, SEPERATE INSTRUCTIONS
  5. KALCIPOS-D [Concomitant]
     Dosage: 2 TABLETS ONCE A DAY
  6. PAUSANOL [Concomitant]
     Dosage: 0.1 MG/G, 1X/DAY
  7. PREDNISOLONE [Concomitant]
     Dosage: 5 MG, 1X/DAY
  8. ZITHROMAX [Suspect]
     Indication: PROPHYLAXIS
     Dosage: 250 MG, 1 TABLET FOR 4 DAYS, THEN 4 DAY BREAK AND REPEAT COURSE OF TREATMENT
     Route: 048
     Dates: start: 20110101, end: 20120712
  9. LEVOTHYROXINE SODIUM [Concomitant]
     Indication: HYPOTHYROIDISM
     Dosage: 100 UG, 1X/DAY

REACTIONS (8)
  - APATHY [None]
  - TEARFULNESS [None]
  - HEADACHE [None]
  - DEPRESSED MOOD [None]
  - ABDOMINAL PAIN UPPER [None]
  - FATIGUE [None]
  - PRURITUS [None]
  - SWELLING [None]
